FAERS Safety Report 15615780 (Version 1)
Quarter: 2018Q4

REPORT INFORMATION
  Report Type: Spontaneous
  Country: US (occurrence: US)
  Receive Date: 20181114
  Receipt Date: 20181114
  Transmission Date: 20190205
  Serious: No
  Sender: FDA-Public Use
  Company Number: US-LEXICON PHARMACEUTICALS, INC-18-1606-01330

PATIENT
  Sex: Female

DRUGS (6)
  1. OCTREOTIDE ACETATE. [Concomitant]
     Active Substance: OCTREOTIDE ACETATE
  2. POTASSIUM [Concomitant]
     Active Substance: POTASSIUM
  3. VITAMIN B12 [Concomitant]
     Active Substance: CYANOCOBALAMIN
  4. ALLOPURINOL. [Concomitant]
     Active Substance: ALLOPURINOL
  5. VITAMIN D [Concomitant]
     Active Substance: CHOLECALCIFEROL
  6. TELOTRISTAT ETHYL [Suspect]
     Active Substance: TELOTRISTAT ETHYL
     Indication: CARCINOID SYNDROME
     Route: 048
     Dates: start: 20170809

REACTIONS (3)
  - Sinus operation [Unknown]
  - Oropharyngeal pain [Unknown]
  - Malaise [Unknown]

NARRATIVE: CASE EVENT DATE: 2018
